FAERS Safety Report 8124316-0 (Version None)
Quarter: 2012Q1

REPORT INFORMATION
  Report Type: 
  Country: None (occurrence: None)
  Receive Date: 20120209
  Receipt Date: 20120201
  Transmission Date: 20120608
  Serious: Yes (Hospitalization)
  Sender: FDA-Public Use
  Company Number: US-BAYER-2011-061746

PATIENT
  Age: 38 Year
  Sex: Female
  Weight: 86 kg

DRUGS (5)
  1. YAZ [Suspect]
     Indication: PREMENSTRUAL SYNDROME
     Dosage: UNK
     Dates: start: 20090401, end: 20091101
  2. ASCORBIC ACID [Concomitant]
     Dosage: UNK UNK, PRN
  3. WOMAN+#8217;S DAILY VITAMINS [Concomitant]
     Dosage: UNK UNK, QD
     Dates: start: 20070101
  4. YAZ [Suspect]
  5. NSAID'S [Concomitant]
     Dosage: UNK UNK, PRN

REACTIONS (10)
  - FEAR [None]
  - CHEST PAIN [None]
  - PSYCHOLOGICAL TRAUMA [None]
  - THROMBOPHLEBITIS SUPERFICIAL [None]
  - ANHEDONIA [None]
  - DYSPNOEA [None]
  - PAIN [None]
  - PULMONARY EMBOLISM [None]
  - DEEP VEIN THROMBOSIS [None]
  - ANXIETY [None]
